FAERS Safety Report 8866205 (Version 2)
Quarter: 2013Q4

REPORT INFORMATION
  Report Type: Spontaneous
  Country: CA (occurrence: CA)
  Receive Date: 20121025
  Receipt Date: 20131105
  Transmission Date: 20140711
  Serious: Yes (Death, Other)
  Sender: FDA-Public Use
  Company Number: CA-009507513-1210CAN010295

PATIENT
  Age: 53 Year
  Sex: Male

DRUGS (2)
  1. TEMOZOLOMIDE [Suspect]
     Indication: GLIOBLASTOMA
     Dosage: 75 MG/M2, UNK
  2. RADIATION THERAPY [Suspect]
     Indication: GLIOBLASTOMA
     Dosage: COMBINED DOSE OF 60 GY IN 30 FRACTIONS

REACTIONS (7)
  - Pulmonary embolism [Fatal]
  - Metastases to meninges [Unknown]
  - Neoplasm recurrence [Unknown]
  - Disease progression [Unknown]
  - Myelopathy [Unknown]
  - Ataxia [Unknown]
  - Urinary incontinence [Unknown]
